FAERS Safety Report 9173539 (Version 3)
Quarter: 2013Q3

REPORT INFORMATION
  Report Type: Spontaneous
  Country: US (occurrence: None)
  Receive Date: 20130314
  Receipt Date: 20130929
  Transmission Date: 20140515
  Serious: Yes (Hospitalization)
  Sender: FDA-Public Use
  Company Number: JPI-P-030352

PATIENT
  Age: 82 Year
  Sex: Female

DRUGS (10)
  1. XYREM [Suspect]
     Indication: CATAPLEXY
     Dosage: 4.5 GM (2.25 GM,2 IN 1 D)
     Route: 048
     Dates: start: 200401
  2. DILTIAZEM [Concomitant]
  3. LOSARTAN POTASSIUM [Concomitant]
  4. METFORMIN [Concomitant]
  5. ARMODAFINIL [Concomitant]
  6. LEVOTHYROXINE [Concomitant]
  7. DESIPRAMINE [Concomitant]
  8. VENLAFAXINE [Concomitant]
  9. VITAMINS [Concomitant]
  10. HYDROCHLOROTHIAZIDE [Concomitant]

REACTIONS (7)
  - Fall [None]
  - Contusion [None]
  - Contusion [None]
  - Somnolence [None]
  - Ataxia [None]
  - Neuropathy peripheral [None]
  - Sudden onset of sleep [None]
